FAERS Safety Report 5812555-0 (Version None)
Quarter: 2008Q3

REPORT INFORMATION
  Report Type: 
  Country: None (occurrence: None)
  Receive Date: 20080714
  Receipt Date: 20080714
  Transmission Date: 20090109
  Serious: Yes (Other)
  Sender: FDA-Public Use
  Company Number: None

PATIENT
  Age: 38 Year
  Sex: Female
  Weight: 80.7403 kg

DRUGS (2)
  1. NIFEDIPINE [Suspect]
     Indication: PROPHYLAXIS
     Dosage: 10MG 1 DOSE/4X DAY MOUT
     Route: 048
     Dates: start: 20080713, end: 20080713
  2. NIFEDIPINE [Suspect]
     Indication: THREATENED LABOUR
     Dosage: 10MG 1 DOSE/4X DAY MOUT
     Route: 048
     Dates: start: 20080713, end: 20080713

REACTIONS (6)
  - DRUG EXPOSURE DURING PREGNANCY [None]
  - DYSSTASIA [None]
  - ERYTHEMA [None]
  - HYPOAESTHESIA [None]
  - OEDEMA [None]
  - OEDEMA PERIPHERAL [None]
